FAERS Safety Report 9144928 (Version 6)
Quarter: 2013Q3

REPORT INFORMATION
  Report Type: Spontaneous
  Country: BR (occurrence: BR)
  Receive Date: 20130307
  Receipt Date: 20130906
  Transmission Date: 20140515
  Serious: Yes (Other)
  Sender: FDA-Public Use
  Company Number: BR-BIOGENIDEC-2013BI012065

PATIENT
  Age: 32 Year
  Sex: Female
  Weight: 71 kg

DRUGS (6)
  1. AVONEX [Suspect]
     Indication: PRODUCT USED FOR UNKNOWN INDICATION
     Route: 030
     Dates: start: 201101, end: 20120620
  2. COMBIRON [Concomitant]
     Indication: PREGNANCY
     Route: 048
     Dates: start: 201206, end: 201210
  3. BUSCOPAN [Concomitant]
     Indication: ABDOMINAL PAIN
     Route: 048
     Dates: start: 201206, end: 201301
  4. LUFTAL [Concomitant]
     Indication: FLATULENCE
     Route: 048
     Dates: start: 201206
  5. TAMARINE [Concomitant]
     Indication: CONSTIPATION
     Route: 048
     Dates: start: 201206
  6. CELESTONE [Concomitant]
     Indication: PREGNANCY
     Route: 048

REACTIONS (3)
  - Haemorrhage [Recovered/Resolved]
  - Cervical incompetence [Recovered/Resolved]
  - Stress [Unknown]
